FAERS Safety Report 18480711 (Version 1)
Quarter: 2020Q4

REPORT INFORMATION
  Report Type: Spontaneous
  Country: US (occurrence: US)
  Receive Date: 20201109
  Receipt Date: 20201109
  Transmission Date: 20210114
  Serious: Yes (Other)
  Sender: FDA-Public Use
  Company Number: US-COVIS PHARMA B.V.-2020COV00528

PATIENT
  Age: 66 Year
  Sex: Female
  Weight: 61.22 kg

DRUGS (12)
  1. VITAMIN D [Concomitant]
     Active Substance: VITAMIN D NOS
     Indication: BONE DISORDER
     Route: 048
  2. BYDUREON [Suspect]
     Active Substance: EXENATIDE
     Indication: TYPE 2 DIABETES MELLITUS
     Dosage: 2 MG, 1X/WEEK
     Route: 058
  3. AMLODIPINE [Concomitant]
     Active Substance: AMLODIPINE BESYLATE
     Indication: BLOOD PRESSURE ABNORMAL
     Dosage: 5 MG, 1X/DAY
     Route: 048
  4. VITAMIN E [Concomitant]
     Active Substance: .ALPHA.-TOCOPHEROL
     Route: 048
  5. METFORMIN [Concomitant]
     Active Substance: METFORMIN HYDROCHLORIDE
     Indication: TYPE 2 DIABETES MELLITUS
     Dosage: 1000 MG, 2X/DAY
     Route: 048
  6. GLIPIZIDE. [Concomitant]
     Active Substance: GLIPIZIDE
     Indication: TYPE 2 DIABETES MELLITUS
     Dosage: 2 MG, 1X/DAY
     Route: 048
  7. OMEPRAZOLE MAGNESIUM. [Suspect]
     Active Substance: OMEPRAZOLE MAGNESIUM
     Indication: GASTROOESOPHAGEAL REFLUX DISEASE
     Dosage: 20 MG/ AS NEEDED
     Route: 048
  8. GABAPENTIN. [Concomitant]
     Active Substance: GABAPENTIN
     Indication: NEUROPATHY PERIPHERAL
     Dosage: 600 MG, 3X/DAY
     Route: 048
  9. LISINOPRIL. [Concomitant]
     Active Substance: LISINOPRIL
     Indication: BLOOD PRESSURE ABNORMAL
     Dosage: 20 MG, 2X/DAY
     Route: 048
  10. ASPIRIN. [Concomitant]
     Active Substance: ASPIRIN
     Indication: CARDIAC DISORDER
     Dosage: 81 MG, 1X/DAY
     Route: 048
  11. METOPROLOL SUCCINATE. [Concomitant]
     Active Substance: METOPROLOL SUCCINATE
     Indication: BLOOD PRESSURE ABNORMAL
     Dosage: 100 MG, 1X/DAY
     Route: 048
  12. ANASTROZOLE. [Suspect]
     Active Substance: ANASTROZOLE
     Indication: BREAST CANCER FEMALE
     Dosage: 1 MG, 1X/DAY
     Route: 048

REACTIONS (5)
  - Weight decreased [Unknown]
  - Glycosylated haemoglobin abnormal [Recovering/Resolving]
  - Peripheral arterial occlusive disease [Unknown]
  - Carotid artery occlusion [Unknown]
  - Breast cancer female [Recovering/Resolving]

NARRATIVE: CASE EVENT DATE: 202005
